FAERS Safety Report 5733534-8 (Version None)
Quarter: 2008Q2

REPORT INFORMATION
  Report Type: 
  Country: None (occurrence: None)
  Receive Date: 20080509
  Receipt Date: 20080505
  Transmission Date: 20081010
  Serious: Yes (Hospitalization)
  Sender: FDA-Public Use
  Company Number: US-AVENTIS-200811957US

PATIENT
  Sex: Female
  Weight: 81.9 kg

DRUGS (27)
  1. TAXOTERE [Suspect]
     Indication: BREAST CANCER
     Dosage: DOSE: 75MG/M2
     Route: 042
     Dates: start: 20080306, end: 20080306
  2. TAXOTERE [Suspect]
     Route: 042
     Dates: start: 20080325, end: 20080325
  3. CYTOXAN [Concomitant]
     Dosage: DOSE: UNK
     Dates: start: 20080306
  4. DECADRON [Concomitant]
     Dosage: DOSE: 8MG BID THE DAY BEFORE, THE DAY OF AND THE DAY AFTER TAXOTERE
     Route: 048
  5. DECADRON [Concomitant]
     Route: 042
     Dates: start: 20080325
  6. ONDANSETRON [Concomitant]
     Dosage: DOSE: UNK
  7. ALPRAZOLAM [Concomitant]
     Indication: ANXIETY
     Dosage: DOSE: 1-1.5 TABS QID
     Route: 048
  8. ENALAPRIL MALEATE [Concomitant]
     Indication: HYPERTENSION
     Route: 048
  9. FLUTICASONE [Concomitant]
     Dosage: DOSE: 2 SPRAYS EACH NOSTRIL QD, 50MCG SUSPENSION
  10. VICODIN [Concomitant]
     Indication: PAIN
     Dosage: DOSE: 5/500MG TABLET; 1-2 TABS EVERY 6 HRS PRN
     Route: 048
  11. WESTCORT [Concomitant]
     Dosage: DOSE: UNK
  12. BONIVA [Concomitant]
     Route: 048
  13. ATIVAN [Concomitant]
     Indication: NAUSEA
     Dosage: DOSE: .5 MG EVERY 8HRS PRN
  14. NAPROXEN [Concomitant]
  15. OXYCONTIN [Concomitant]
     Dosage: DOSE: 20MG SUSTAINED RELEASE
  16. NEULASTA [Concomitant]
     Dosage: DOSE: 6MG/0.6ML, 1CC 24HRS AFTER CHEMO
  17. DONNATAL [Concomitant]
     Dosage: DOSE: 1-2TABS (16.2MG TAB) QD
     Route: 048
  18. COMPAZINE [Concomitant]
     Indication: NAUSEA
     Dosage: DOSE: 10 (1TAB EVERY 8HRS PRN)
     Route: 048
  19. RANITIDINE HCL [Concomitant]
     Route: 048
  20. ZOCOR [Concomitant]
     Route: 048
  21. DYAZIDE [Concomitant]
     Dosage: DOSE: 37.5/25
     Route: 048
  22. CALCIUM, COMBINATIONS WITH OTHER DRUGS [Concomitant]
     Dosage: DOSE: 600MG/400UNIT TAB
     Route: 048
  23. COLACE [Concomitant]
     Indication: CONSTIPATION
     Dosage: DOSE: 100MG CAP, 2-4 CAPS BID PRN
     Route: 048
  24. CLARITIN [Concomitant]
     Route: 048
  25. MILK OF MAGNESIA [Concomitant]
     Dosage: DOSE: DOSAGE UNCERTAIN
  26. CENTRUM                            /00554501/ [Concomitant]
     Dosage: DOSE: DOSAGE UNCERTAIN
  27. SENNA [Concomitant]
     Indication: CONSTIPATION
     Dosage: DOSE: 8.6MG TAB; 1-2TABS BID PRN
     Route: 048

REACTIONS (7)
  - ERUCTATION [None]
  - HEART RATE DECREASED [None]
  - HYPOTENSION [None]
  - HYPOTHERMIA [None]
  - MOANING [None]
  - MUSCULAR WEAKNESS [None]
  - SYNCOPE [None]
